FAERS Safety Report 9968897 (Version 1)
Quarter: 2014Q1

REPORT INFORMATION
  Report Type: Report from Study
  Country: US (occurrence: US)
  Receive Date: 20140306
  Receipt Date: 20140306
  Transmission Date: 20141002
  Serious: No
  Sender: FDA-Public Use
  Company Number: US-ABBVIE-13P-163-1143473-00

PATIENT
  Age: 44 Year
  Sex: Male
  Weight: 104.42 kg

DRUGS (10)
  1. HUMIRA [Suspect]
     Indication: CROHN^S DISEASE
     Route: 058
     Dates: start: 20130307
  2. SYNTHROID [Suspect]
     Indication: HYPOTHYROIDISM
     Dates: start: 201305, end: 201305
  3. SYNTHROID [Suspect]
     Indication: HYPOTHYROIDISM
     Dates: start: 201305
  4. COUMADIN [Concomitant]
     Indication: ANTICOAGULANT THERAPY
  5. SIMVASTATIN [Concomitant]
     Indication: BLOOD CHOLESTEROL INCREASED
  6. EFFEXOR [Concomitant]
     Indication: DEPRESSION
  7. LITHIUM [Concomitant]
     Indication: DEPRESSION
  8. DEPAKOTE [Concomitant]
     Indication: DEPRESSION
  9. PROZAC [Concomitant]
     Indication: DEPRESSION
  10. OMEPRAZOLE [Concomitant]
     Indication: GASTROOESOPHAGEAL REFLUX DISEASE

REACTIONS (2)
  - Thyroid function test abnormal [Unknown]
  - Blood thyroid stimulating hormone increased [Not Recovered/Not Resolved]
